FAERS Safety Report 4946153-8 (Version None)
Quarter: 2006Q1

REPORT INFORMATION
  Report Type: 
  Country: None (occurrence: None)
  Receive Date: 20060118
  Receipt Date: 20050119
  Transmission Date: 20060701
  Serious: Yes (Other)
  Sender: FDA-Public Use
  Company Number: BDI-006839

PATIENT
  Age: 68 Year
  Sex: Male

DRUGS (2)
  1. PROHANCE [Suspect]
     Indication: CAROTID ARTERY OCCLUSION
     Dosage: 40 ML ONCE IV
     Route: 042
     Dates: start: 20050119, end: 20050119
  2. PROHANCE [Suspect]
     Indication: NUCLEAR MAGNETIC RESONANCE IMAGING
     Dosage: 40 ML ONCE IV
     Route: 042
     Dates: start: 20050119, end: 20050119

REACTIONS (2)
  - ANAPHYLACTIC REACTION [None]
  - CONVULSION [None]
